FAERS Safety Report 6781159-8 (Version None)
Quarter: 2010Q2

REPORT INFORMATION
  Report Type: 
  Country: None (occurrence: None)
  Receive Date: 20100621
  Receipt Date: 20100519
  Transmission Date: 20101027
  Serious: No
  Sender: FDA-Public Use
  Company Number: US-BAYER-201015860BCC

PATIENT
  Age: 70 Year
  Sex: Female
  Weight: 61 kg

DRUGS (5)
  1. ALEVE (CAPLET) [Suspect]
     Indication: ARTHRALGIA
     Dosage: UNIT DOSE: 220 MG
     Route: 048
     Dates: start: 20080101
  2. TENORMIN [Concomitant]
     Route: 065
  3. BENICAR [Concomitant]
     Route: 065
  4. CHEWABLE BAYER ASPIRIN [Concomitant]
     Route: 048
  5. LOVAZA [Concomitant]
     Route: 065

REACTIONS (18)
  - APHONIA [None]
  - BACK PAIN [None]
  - EAR PRURITUS [None]
  - ERYTHEMA [None]
  - EYE PRURITUS [None]
  - EYE SWELLING [None]
  - HYPERSENSITIVITY [None]
  - LIP PAIN [None]
  - LOCAL SWELLING [None]
  - ORAL PRURITUS [None]
  - PARAESTHESIA ORAL [None]
  - PRURITUS [None]
  - PRURITUS GENERALISED [None]
  - RHINORRHOEA [None]
  - SOMNOLENCE [None]
  - SWOLLEN TONGUE [None]
  - TONGUE PRURITUS [None]
  - URTICARIA [None]
